FAERS Safety Report 22159225 (Version 2)
Quarter: 2023Q2

REPORT INFORMATION
  Report Type: Spontaneous
  Country: BR (occurrence: BR)
  Receive Date: 20230331
  Receipt Date: 20230413
  Transmission Date: 20230722
  Serious: Yes (Other)
  Sender: FDA-Public Use
  Company Number: BR-009507513-2303BRA010686

PATIENT
  Sex: Male
  Weight: 60 kg

DRUGS (4)
  1. CUBICIN [Suspect]
     Active Substance: DAPTOMYCIN
     Indication: Post procedural infection
     Dosage: UNK, QD
     Dates: start: 20230305
  2. CUBICIN [Suspect]
     Active Substance: DAPTOMYCIN
     Dosage: 750 MILLIGRAM, QD
  3. ENOXAPARIN [Concomitant]
     Active Substance: ENOXAPARIN
  4. BEXTRA [PARECOXIB SODIUM] [Concomitant]

REACTIONS (4)
  - Thrombosis [Unknown]
  - Product prescribing issue [Unknown]
  - Incorrect dose administered [Unknown]
  - Product use in unapproved indication [Unknown]

NARRATIVE: CASE EVENT DATE: 20230101
